FAERS Safety Report 4616283-9 (Version None)
Quarter: 2005Q1

REPORT INFORMATION
  Report Type: 
  Country: None (occurrence: None)
  Receive Date: 20050321
  Receipt Date: 20050311
  Transmission Date: 20050727
  Serious: Yes (Hospitalization, Other)
  Sender: FDA-Public Use
  Company Number: KII-2005-0015465

PATIENT
  Age: 36 Year
  Sex: Female

DRUGS (2)
  1. OXYCONTIN [Suspect]
     Indication: DRUG USE FOR UNKNOWN INDICATION
     Dosage: ORAL
     Route: 048
  2. SSRI () [Suspect]
     Indication: DRUG USE FOR UNKNOWN INDICATION
     Dosage: ORAL
     Route: 048

REACTIONS (7)
  - ANAEMIA [None]
  - BLOOD URINE PRESENT [None]
  - DEPRESSED LEVEL OF CONSCIOUSNESS [None]
  - LETHARGY [None]
  - MULTIPLE DRUG OVERDOSE [None]
  - RESPIRATORY RATE DECREASED [None]
  - TACHYCARDIA [None]
